FAERS Safety Report 5006013-3 (Version None)
Quarter: 2006Q2

REPORT INFORMATION
  Report Type: 
  Country: None (occurrence: None)
  Receive Date: 20060518
  Receipt Date: 20060509
  Transmission Date: 20061013
  Serious: Yes (Congenital Anomaly)
  Sender: FDA-Public Use
  Company Number: GB-ABBOTT-06P-167-0332727-00

PATIENT
  Age: 38 Week
  Sex: Male
  Weight: 2.724 kg

DRUGS (1)
  1. SIBUTRAMINE [Suspect]
     Indication: DRUG EXPOSURE DURING PREGNANCY

REACTIONS (4)
  - CONGENITAL ANOMALY [None]
  - DRUG EXPOSURE DURING PREGNANCY [None]
  - MASTOCYTOMA [None]
  - RASH PAPULAR [None]
